FAERS Safety Report 10908107 (Version 1)
Quarter: 2015Q1

REPORT INFORMATION
  Report Type: Spontaneous
  Country: US (occurrence: None)
  Receive Date: 20150309
  Receipt Date: 20150309
  Transmission Date: 20150721
  Serious: Yes (Hospitalization)
  Sender: FDA-Public Use
  Company Number: None

PATIENT
  Age: 70 Year
  Sex: Male
  Weight: 50.6 kg

DRUGS (1)
  1. IBUPROFEN. [Suspect]
     Active Substance: IBUPROFEN
     Indication: PAIN
     Dosage: DOSE OR AMOUNT: 600, TID, PO
     Route: 048
     Dates: start: 20090505, end: 20150127

REACTIONS (2)
  - Gastric haemorrhage [None]
  - Anaemia [None]

NARRATIVE: CASE EVENT DATE: 20150127
